FAERS Safety Report 15556853 (Version 2)
Quarter: 2018Q4

REPORT INFORMATION
  Report Type: Spontaneous
  Country: JP (occurrence: JP)
  Receive Date: 20181026
  Receipt Date: 20181116
  Transmission Date: 20190205
  Serious: Yes (Hospitalization)
  Sender: FDA-Public Use
  Company Number: JP-ASTRAZENECA-2018SF29796

PATIENT
  Age: 27561 Day
  Sex: Male
  Weight: 45 kg

DRUGS (17)
  1. CELECOX [Concomitant]
     Active Substance: CELECOXIB
     Indication: NON-SMALL CELL LUNG CANCER
     Route: 048
     Dates: start: 20180601
  2. DERMOVATE [Concomitant]
     Active Substance: CLOBETASOL
     Indication: RASH
     Dosage: DOSE UNKNOWN
     Route: 062
     Dates: start: 20180314
  3. MINOMYCIN [Concomitant]
     Active Substance: MINOCYCLINE HYDROCHLORIDE
     Indication: PROPHYLAXIS
     Route: 048
     Dates: start: 20180410
  4. TAGRISSO [Suspect]
     Active Substance: OSIMERTINIB
     Indication: NON-SMALL CELL LUNG CANCER
     Route: 048
     Dates: start: 20180501, end: 20180522
  5. TAGRISSO [Suspect]
     Active Substance: OSIMERTINIB
     Indication: NON-SMALL CELL LUNG CANCER
     Route: 048
     Dates: start: 20180627, end: 20180817
  6. TAGRISSO [Suspect]
     Active Substance: OSIMERTINIB
     Indication: NON-SMALL CELL LUNG CANCER
     Route: 048
     Dates: start: 20180818
  7. FLIVAS OD [Concomitant]
     Active Substance: NAFTOPIDIL
     Indication: BENIGN PROSTATIC HYPERPLASIA
     Route: 048
  8. SYMPROIC [Concomitant]
     Active Substance: NALDEMEDINE
     Indication: CONSTIPATION PROPHYLAXIS
     Route: 048
     Dates: start: 20180706
  9. TAGRISSO [Suspect]
     Active Substance: OSIMERTINIB
     Indication: NON-SMALL CELL LUNG CANCER
     Route: 048
     Dates: start: 20180406, end: 20180411
  10. TAGRISSO [Suspect]
     Active Substance: OSIMERTINIB
     Indication: NON-SMALL CELL LUNG CANCER
     Route: 048
     Dates: start: 20180416, end: 20180426
  11. PLAVIX [Concomitant]
     Active Substance: CLOPIDOGREL BISULFATE
     Indication: ANGINA PECTORIS
     Route: 048
  12. NEXIUM [Concomitant]
     Active Substance: ESOMEPRAZOLE MAGNESIUM
     Indication: GASTRIC ULCER
     Route: 048
  13. BIOFERMIN [Concomitant]
     Active Substance: BACILLUS SUBTILIS\LACTOBACILLUS ACIDOPHILUS\STREPTOCOCCUS FAECAIS
     Indication: GASTRIC ULCER
     Route: 048
  14. LIPITOR [Concomitant]
     Active Substance: ATORVASTATIN CALCIUM
     Indication: HYPERLIPIDAEMIA
     Route: 048
  15. HIRUDOID [Concomitant]
     Active Substance: GLYCOSAMINOGLYCANS
     Indication: PROPHYLAXIS
     Dosage: DOSE UNKNOWN
     Route: 062
     Dates: start: 20180314
  16. XYZAL [Concomitant]
     Active Substance: LEVOCETIRIZINE DIHYDROCHLORIDE
     Route: 048
     Dates: start: 20180410
  17. TALION (BEPOTASTINE BESYLATE) [Concomitant]
     Active Substance: BEPOTASTINE BESILATE
     Indication: RASH
     Route: 048
     Dates: start: 20180314, end: 20180409

REACTIONS (5)
  - Pyrexia [Recovered/Resolved]
  - Hepatic function abnormal [Recovering/Resolving]
  - Off label use [Unknown]
  - Diarrhoea [Recovered/Resolved]
  - Spinal compression fracture [Recovering/Resolving]

NARRATIVE: CASE EVENT DATE: 20180411
